FAERS Safety Report 15386298 (Version 1)
Quarter: 2018Q3

REPORT INFORMATION
  Report Type: Spontaneous
  Country: FR (occurrence: FR)
  Receive Date: 20180914
  Receipt Date: 20180914
  Transmission Date: 20181010
  Serious: Yes (Hospitalization, Other)
  Sender: FDA-Public Use
  Company Number: FR-TEVA-2018-FR-954588

PATIENT
  Age: 59 Year
  Sex: Female

DRUGS (7)
  1. DICLOFENAC SODIUM. [Suspect]
     Active Substance: DICLOFENAC SODIUM
     Indication: PRODUCT USED FOR UNKNOWN INDICATION
     Dosage: 1 DOSAGE FORMS DAILY;
     Route: 030
     Dates: start: 201202, end: 201203
  2. ACUPAN [Concomitant]
     Active Substance: NEFOPAM HYDROCHLORIDE
     Route: 065
  3. DOLIPRANE [Suspect]
     Active Substance: ACETAMINOPHEN
     Indication: PRODUCT USED FOR UNKNOWN INDICATION
     Dosage: 1 GRAM DAILY;
     Route: 048
     Dates: start: 20120222, end: 20120322
  4. BIPROFENID [Suspect]
     Active Substance: KETOPROFEN
     Dosage: 1 DOSAGE FORMS DAILY; 1 MICROG/L
     Route: 048
     Dates: start: 20120222, end: 20120322
  5. PROFENID [Suspect]
     Active Substance: KETOPROFEN
     Indication: PRODUCT USED FOR UNKNOWN INDICATION
     Dosage: 100 MILLIGRAM DAILY;
     Route: 030
     Dates: start: 20120323, end: 20120327
  6. VOLTAREN [Concomitant]
     Active Substance: DICLOFENAC SODIUM
     Route: 065
  7. TETRAZEPAM [Concomitant]
     Active Substance: TETRAZEPAM
     Route: 065

REACTIONS (1)
  - Hepatitis [Unknown]

NARRATIVE: CASE EVENT DATE: 20120327
